FAERS Safety Report 20355452 (Version 1)
Quarter: 2022Q1

REPORT INFORMATION
  Report Type: Spontaneous
  Country: CA (occurrence: CA)
  Receive Date: 20220120
  Receipt Date: 20220120
  Transmission Date: 20220423
  Serious: Yes (Hospitalization)
  Sender: FDA-Public Use
  Company Number: CA-PFIZER INC-202200063691

PATIENT
  Age: 21 Month
  Sex: Male
  Weight: 11 kg

DRUGS (4)
  1. AMLODIPINE BESYLATE [Suspect]
     Active Substance: AMLODIPINE BESYLATE
     Indication: Accidental exposure to product by child
     Dosage: 5 MG, SINGLE
     Route: 048
  2. ASPIRIN [Suspect]
     Active Substance: ASPIRIN
     Indication: Accidental exposure to product by child
     Dosage: 80 MG, SINGLE
     Route: 048
  3. BISOPROLOL [Suspect]
     Active Substance: BISOPROLOL
     Indication: Accidental exposure to product by child
     Dosage: 10 MG, SINGLE
     Route: 048
  4. ROSUVASTATIN [Suspect]
     Active Substance: ROSUVASTATIN
     Dosage: 10 MG, SINGLE
     Route: 048

REACTIONS (2)
  - Accidental poisoning [Recovered/Resolved]
  - Accidental exposure to product by child [Recovered/Resolved]
